FAERS Safety Report 13146775 (Version 3)
Quarter: 2017Q1

REPORT INFORMATION
  Report Type: Report from Study
  Country: None (occurrence: TW)
  Receive Date: 20170125
  Receipt Date: 20170223
  Transmission Date: 20170428
  Serious: Yes (Death, Hospitalization)
  Sender: FDA-Public Use
  Company Number: TW-ABBVIE-17K-153-1849518-00

PATIENT
  Age: 59 Year
  Sex: Female
  Weight: 65 kg

DRUGS (1)
  1. HUMIRA [Suspect]
     Active Substance: ADALIMUMAB
     Indication: RHEUMATOID ARTHRITIS
     Route: 058
     Dates: start: 20090519, end: 20161020

REACTIONS (3)
  - Coma [Fatal]
  - Wound infection [Unknown]
  - Inflammation of wound [Recovering/Resolving]

NARRATIVE: CASE EVENT DATE: 20161215
